FAERS Safety Report 20132961 (Version 1)
Quarter: 2021Q4

REPORT INFORMATION
  Report Type: Spontaneous
  Country: US (occurrence: US)
  Receive Date: 20211201
  Receipt Date: 20211201
  Transmission Date: 20220303
  Serious: Yes (Other)
  Sender: FDA-Public Use
  Company Number: US-BEH-2021138651

PATIENT
  Sex: Female

DRUGS (12)
  1. HAEGARDA [Suspect]
     Active Substance: HUMAN C1-ESTERASE INHIBITOR
     Indication: Hereditary angioedema
     Dosage: 5000 INTERNATIONAL UNIT, BIW
     Route: 058
     Dates: start: 20210713
  2. HAEGARDA [Suspect]
     Active Substance: HUMAN C1-ESTERASE INHIBITOR
     Indication: Prophylaxis
  3. HAEGARDA [Suspect]
     Active Substance: HUMAN C1-ESTERASE INHIBITOR
     Indication: Hereditary angioedema
     Dosage: 5000 INTERNATIONAL UNIT, BIW
     Route: 058
     Dates: start: 20210713
  4. HAEGARDA [Suspect]
     Active Substance: HUMAN C1-ESTERASE INHIBITOR
     Indication: Prophylaxis
  5. AZITHROMYCIN [Concomitant]
     Active Substance: AZITHROMYCIN
     Route: 065
  6. EPINEPHRINE [Concomitant]
     Active Substance: EPINEPHRINE
     Dosage: 0.3 MILLIGRAM
     Route: 065
  7. FAMCICLOVIR [Concomitant]
     Active Substance: FAMCICLOVIR
     Dosage: 250 MILLIGRAM
     Route: 065
  8. FIRAZYR [Concomitant]
     Active Substance: ICATIBANT ACETATE
     Route: 065
  9. FLUCONAZOLE [Concomitant]
     Active Substance: FLUCONAZOLE
     Dosage: 150 MILLIGRAM
     Route: 065
  10. ICATIBANT [Concomitant]
     Active Substance: ICATIBANT ACETATE
     Dosage: 30 MG/3 ML
     Route: 065
  11. OMEPRAZOLE [Concomitant]
     Active Substance: OMEPRAZOLE
     Dosage: 40 MILLIGRAM
     Route: 065
  12. PREDNISONE [Concomitant]
     Active Substance: PREDNISONE
     Dosage: 20 MILLIGRAM
     Route: 065

REACTIONS (2)
  - Hereditary angioedema [Unknown]
  - Drug ineffective [Unknown]
